FAERS Safety Report 5572261-7 (Version None)
Quarter: 2007Q4

REPORT INFORMATION
  Report Type: 
  Country: None (occurrence: None)
  Receive Date: 20071219
  Receipt Date: 20071203
  Transmission Date: 20080405
  Serious: Yes (Hospitalization)
  Sender: FDA-Public Use
  Company Number: B0498274A

PATIENT
  Age: 66 Year
  Sex: Female

DRUGS (1)
  1. EPIVIR [Suspect]
     Indication: HEPATITIS B
     Dosage: ORAL
     Route: 048

REACTIONS (3)
  - ANTI-THYROID ANTIBODY POSITIVE [None]
  - ANTIBODY TEST POSITIVE [None]
  - TYPE 1 DIABETES MELLITUS [None]
